FAERS Safety Report 7305333-7 (Version None)
Quarter: 2011Q1

REPORT INFORMATION
  Report Type: 
  Country: None (occurrence: None)
  Receive Date: 20110222
  Receipt Date: 20110208
  Transmission Date: 20110831
  Serious: Yes (Other)
  Sender: FDA-Public Use
  Company Number: PHHY2011UY10403

PATIENT
  Sex: Female

DRUGS (1)
  1. LEPONEX [Suspect]
     Dosage: 25 MG/DAY
     Dates: start: 20091119

REACTIONS (2)
  - TOOTH DECALCIFICATION [None]
  - SALIVARY HYPERSECRETION [None]
